FAERS Safety Report 10113283 (Version 1)
Quarter: 2014Q2

REPORT INFORMATION
  Report Type: Report from Study
  Country: US (occurrence: US)
  Receive Date: 20140425
  Receipt Date: 20140425
  Transmission Date: 20141212
  Serious: Yes (Hospitalization)
  Sender: FDA-Public Use
  Company Number: US-BAYER-2014-058519

PATIENT
  Age: 31 Year
  Sex: Female

DRUGS (1)
  1. MIRENA [Suspect]
     Indication: CONTRACEPTION
     Dosage: 20 MCG/24HR, CONT
     Route: 015
     Dates: start: 200903

REACTIONS (9)
  - Abdominal pain upper [None]
  - Weight increased [None]
  - Hypothyroidism [None]
  - Alopecia [None]
  - Fatigue [None]
  - Hypersomnia [None]
  - Loss of libido [None]
  - Asthenia [None]
  - Device misuse [None]
